FAERS Safety Report 9984749 (Version 1)
Quarter: 2014Q1

REPORT INFORMATION
  Report Type: Spontaneous
  Country: US (occurrence: US)
  Receive Date: 20140307
  Receipt Date: 20140307
  Transmission Date: 20141002
  Serious: No
  Sender: FDA-Public Use
  Company Number: US-009507513-1403USA001845

PATIENT
  Sex: Male

DRUGS (3)
  1. VICTRELIS [Suspect]
     Indication: HEPATITIS C
     Dosage: 400 MG, QD
     Route: 048
     Dates: start: 20121101, end: 20131101
  2. REBETOL [Suspect]
     Indication: HEPATITIS C
     Dosage: DOSE: 2AM/3PM, BID
     Route: 048
     Dates: start: 20121101, end: 20131101
  3. PEGASYS [Suspect]
     Indication: HEPATITIS C
     Dosage: 180 MICROGRAM, QW
     Route: 058
     Dates: start: 20121101, end: 20131101

REACTIONS (1)
  - Hepatitis C [Unknown]
